FAERS Safety Report 17175632 (Version 3)
Quarter: 2020Q4

REPORT INFORMATION
  Report Type: Spontaneous
  Country: IT (occurrence: IT)
  Receive Date: 20191219
  Receipt Date: 20201204
  Transmission Date: 20210113
  Serious: Yes (Other)
  Sender: FDA-Public Use
  Company Number: IT-MYLANLABS-2019M1124812

PATIENT
  Age: 86 Year
  Sex: Female

DRUGS (15)
  1. TRAMADOL. [Suspect]
     Active Substance: TRAMADOL
     Indication: BACK PAIN
     Dosage: UNK
  2. TRAMADOL. [Suspect]
     Active Substance: TRAMADOL
     Indication: SPINAL PAIN
     Dosage: UNK
  3. NIMESULIDE [Suspect]
     Active Substance: NIMESULIDE
     Indication: BACK PAIN
     Dosage: UNK
     Route: 065
  4. OXYCODONE HYDROCHLORIDE. [Suspect]
     Active Substance: OXYCODONE HYDROCHLORIDE
     Indication: SPINAL PAIN
     Dosage: UNK
     Route: 065
  5. NIMESULIDE [Suspect]
     Active Substance: NIMESULIDE
     Indication: SPINAL PAIN
  6. DICLOFENAC [Suspect]
     Active Substance: DICLOFENAC
     Indication: SPINAL PAIN
     Dosage: UNK
     Route: 065
  7. DICLOFENAC [Suspect]
     Active Substance: DICLOFENAC
     Indication: BACK PAIN
     Dosage: UNK
  8. ETORICOXIB. [Suspect]
     Active Substance: ETORICOXIB
     Indication: BACK PAIN
     Dosage: UNK
     Route: 065
  9. KETOROLAC [Suspect]
     Active Substance: KETOROLAC TROMETHAMINE
     Indication: SPINAL PAIN
  10. OXYCODONE HYDROCHLORIDE. [Suspect]
     Active Substance: OXYCODONE HYDROCHLORIDE
     Indication: BACK PAIN
     Dosage: UNK
     Route: 065
  11. ETORICOXIB. [Suspect]
     Active Substance: ETORICOXIB
     Indication: SPINAL PAIN
     Dosage: UNK
     Route: 065
  12. KETOROLAC [Suspect]
     Active Substance: KETOROLAC TROMETHAMINE
     Indication: BACK PAIN
     Dosage: UNK
  13. HYDROMORPHONE [Concomitant]
     Active Substance: HYDROMORPHONE
     Indication: SPINAL PAIN
     Dosage: UNK
     Route: 065
  14. DULOXETINE. [Concomitant]
     Active Substance: DULOXETINE
     Indication: SPINAL PAIN
     Dosage: UNK
  15. PREGABALIN. [Concomitant]
     Active Substance: PREGABALIN
     Indication: SPINAL PAIN
     Dosage: UNK
     Route: 065

REACTIONS (6)
  - Speech disorder [Recovered/Resolved]
  - Blood creatinine increased [Recovered/Resolved]
  - Drug abuse [Unknown]
  - Disorientation [Recovered/Resolved]
  - Iron deficiency anaemia [Recovered/Resolved]
  - Blood urea increased [Recovered/Resolved]
